FAERS Safety Report 9201171 (Version 1)
Quarter: 2013Q2

REPORT INFORMATION
  Report Type: Spontaneous
  Country: US (occurrence: US)
  Receive Date: 20130401
  Receipt Date: 20130401
  Transmission Date: 20140414
  Serious: No
  Sender: FDA-Public Use
  Company Number: US-PFIZER INC-2013099568

PATIENT
  Sex: 0

DRUGS (1)
  1. PROTONIX [Suspect]
     Dosage: UNK

REACTIONS (9)
  - Hallucination [Unknown]
  - Insomnia [Unknown]
  - Arthropathy [Unknown]
  - Abdominal pain [Unknown]
  - Gastrointestinal disorder [Unknown]
  - Decreased appetite [Unknown]
  - Pruritus [Unknown]
  - Headache [Unknown]
  - Abnormal dreams [Unknown]
